FAERS Safety Report 16108534 (Version 1)
Quarter: 2019Q1

REPORT INFORMATION
  Report Type: Spontaneous
  Country: US (occurrence: US)
  Receive Date: 20190323
  Receipt Date: 20190323
  Transmission Date: 20190418
  Serious: No
  Sender: FDA-Public Use
  Company Number: US-JNJFOC-20190301924

PATIENT
  Age: 22 Year
  Sex: Male
  Weight: 58.97 kg

DRUGS (2)
  1. INVEGA TRINZA [Suspect]
     Active Substance: PALIPERIDONE PALMITATE
     Indication: SCHIZOPHRENIA
     Route: 030
     Dates: start: 2018, end: 201808
  2. INVEGA SUSTENNA [Suspect]
     Active Substance: PALIPERIDONE PALMITATE
     Indication: SCHIZOPHRENIA
     Route: 030
     Dates: start: 201710, end: 2018

REACTIONS (7)
  - Dysphagia [Recovered/Resolved]
  - Swelling [Recovering/Resolving]
  - Abnormal loss of weight [Not Recovered/Not Resolved]
  - Genital discomfort [Recovering/Resolving]
  - Refusal of treatment by patient [Unknown]
  - Feeling cold [Recovering/Resolving]
  - Dysuria [Recovered/Resolved]

NARRATIVE: CASE EVENT DATE: 201808
